FAERS Safety Report 26100220 (Version 1)
Quarter: 2025Q4

REPORT INFORMATION
  Report Type: Spontaneous
  Country: CH (occurrence: CH)
  Receive Date: 20251128
  Receipt Date: 20251128
  Transmission Date: 20260118
  Serious: Yes (Hospitalization, Other)
  Sender: BRISTOL-MYERS SQUIBB COMPANY
  Company Number: None

PATIENT
  Age: 47 Year
  Sex: Male
  Weight: 69 kg

DRUGS (10)
  1. OPDIVO [Interacting]
     Active Substance: NIVOLUMAB
     Indication: Colorectal cancer metastatic
     Dosage: 240ML
     Route: 042
     Dates: start: 20250711, end: 20250711
  2. OPDIVO [Interacting]
     Active Substance: NIVOLUMAB
     Route: 042
     Dates: start: 20250804, end: 20250804
  3. OPDIVO [Interacting]
     Active Substance: NIVOLUMAB
     Route: 042
     Dates: start: 20250825, end: 20250825
  4. OPDIVO [Interacting]
     Active Substance: NIVOLUMAB
     Route: 042
     Dates: start: 20250915, end: 20250915
  5. YERVOY [Interacting]
     Active Substance: IPILIMUMAB
     Indication: Colorectal cancer metastatic
     Route: 042
     Dates: start: 20250711, end: 20250711
  6. YERVOY [Interacting]
     Active Substance: IPILIMUMAB
     Route: 042
     Dates: start: 20250804, end: 20250804
  7. YERVOY [Interacting]
     Active Substance: IPILIMUMAB
     Route: 042
     Dates: start: 20250825, end: 20250825
  8. YERVOY [Interacting]
     Active Substance: IPILIMUMAB
     Route: 042
     Dates: start: 20250915, end: 20250915
  9. DOXYLAMINE SUCCINATE [Interacting]
     Active Substance: DOXYLAMINE SUCCINATE
     Indication: Product used for unknown indication
     Dosage: 0-0-0-13 DROPS
     Route: 048
  10. Pantoprazol viatris [Concomitant]
     Indication: Product used for unknown indication
     Dosage: 1-0-0-0
     Route: 048

REACTIONS (7)
  - Extrasystoles [Not Recovered/Not Resolved]
  - Glossitis [Not Recovered/Not Resolved]
  - Fatigue [Not Recovered/Not Resolved]
  - Tachycardia [Not Recovered/Not Resolved]
  - Pancreatitis [Not Recovered/Not Resolved]
  - Adrenal insufficiency [Not Recovered/Not Resolved]
  - Drug interaction [Unknown]

NARRATIVE: CASE EVENT DATE: 20250101
